FAERS Safety Report 5877487-0 (Version None)
Quarter: 2008Q3

REPORT INFORMATION
  Report Type: 
  Country: None (occurrence: None)
  Receive Date: 20080909
  Receipt Date: 20080825
  Transmission Date: 20090109
  Serious: Yes (Other)
  Sender: FDA-Public Use
  Company Number: 2008002117

PATIENT
  Age: 72 Year
  Sex: Male

DRUGS (13)
  1. ERLOTINIB(ERLOTINIB) (TABLET) (ERLOTINIB) [Suspect]
     Indication: OESOPHAGEAL CARCINOMA
     Dosage: (100 MG, QD), ORAL
     Route: 048
     Dates: start: 20080702
  2. BEVACIZUMAB (INJECTION FOR INFUSION) [Suspect]
     Indication: OESOPHAGEAL CARCINOMA
     Dosage: (15 MG/KG), INTRAVENOUS
     Route: 042
     Dates: start: 20080702
  3. PACLITAXEL [Suspect]
     Indication: OESOPHAGEAL CARCINOMA
  4. CARBOPLATIN [Suspect]
     Indication: OESOPHAGEAL CARCINOMA
  5. FLUOROURACIL [Suspect]
  6. RADIATION THERAPY [Suspect]
  7. BACTRIM [Concomitant]
  8. ALBUTEROL [Concomitant]
  9. ESOMEPRAZOLE MAGNESIUM [Concomitant]
  10. GLUCOSAMINE(GLUCOSAMINE) [Concomitant]
  11. ZOLPIDEM TARTRATE [Concomitant]
  12. PREDNISONE [Concomitant]
  13. DALTEPARIN SODIUM [Concomitant]

REACTIONS (9)
  - ACTIVATED PARTIAL THROMBOPLASTIN TIME PROLONGED [None]
  - ANOREXIA [None]
  - ASTHENIA [None]
  - ATRIAL FLUTTER [None]
  - DEHYDRATION [None]
  - FATIGUE [None]
  - HAEMATOCRIT DECREASED [None]
  - HAEMOGLOBIN DECREASED [None]
  - SINUS TACHYCARDIA [None]
